FAERS Safety Report 20454699 (Version 1)
Quarter: 2022Q1

REPORT INFORMATION
  Report Type: Spontaneous
  Country: US (occurrence: US)
  Receive Date: 20220210
  Receipt Date: 20220210
  Transmission Date: 20220423
  Serious: Yes (Other)
  Sender: FDA-Public Use
  Company Number: US-LUPIN PHARMACEUTICALS INC.-2022-01770

PATIENT
  Age: 68 Year
  Sex: Female

DRUGS (3)
  1. VANCOMYCIN [Suspect]
     Active Substance: VANCOMYCIN
     Indication: Prophylaxis
     Dosage: UNK, INJECTION; 1.0MG/0.1ML
  2. PREDNISONE [Concomitant]
     Active Substance: PREDNISONE
     Indication: Eye inflammation
     Dosage: 60 MG, QD
     Route: 048
  3. PREDNISONE [Concomitant]
     Active Substance: PREDNISONE
     Dosage: 20 MG, QD, DOSE TAPERED WEEKLY UNTIL IT WAS REDUCED TO 20MG
     Route: 048

REACTIONS (1)
  - Haemorrhagic occlusive retinal vasculitis [Recovering/Resolving]
